FAERS Safety Report 15157689 (Version 2)
Quarter: 2018Q3

REPORT INFORMATION
  Report Type: Spontaneous
  Country: US (occurrence: US)
  Receive Date: 20180718
  Receipt Date: 20180727
  Transmission Date: 20181010
  Serious: No
  Sender: FDA-Public Use
  Company Number: US-HORIZON-DUE-0311-2018

PATIENT
  Age: 72 Year
  Sex: Female

DRUGS (2)
  1. DUEXIS [Suspect]
     Active Substance: FAMOTIDINE\IBUPROFEN
     Indication: ANKLE FRACTURE
     Dosage: 1 TABLET TID
     Dates: start: 20180614
  2. PENNSAID [Concomitant]
     Active Substance: DICLOFENAC SODIUM

REACTIONS (3)
  - Off label use [Recovered/Resolved]
  - Headache [Recovered/Resolved]
  - Nausea [Recovered/Resolved]

NARRATIVE: CASE EVENT DATE: 20180614
